FAERS Safety Report 7932318-X (Version None)
Quarter: 2011Q4

REPORT INFORMATION
  Report Type: 
  Country: None (occurrence: None)
  Receive Date: 20111121
  Receipt Date: 20111115
  Transmission Date: 20120403
  Serious: Yes (Life-Threatening)
  Sender: FDA-Public Use
  Company Number: FR-MERCK-1111FRA00010

PATIENT
  Age: 77 Year
  Sex: Male

DRUGS (6)
  1. JANUMET [Suspect]
     Indication: DIABETES MELLITUS
     Route: 048
     Dates: start: 20110908, end: 20110913
  2. HYDROCHLOROTHIAZIDE AND IRBESARTAN [Concomitant]
     Route: 065
  3. CIPROFLOXACIN HYDROCHLORIDE [Concomitant]
     Route: 065
  4. FLUINDIONE [Concomitant]
     Route: 065
  5. NEBIVOLOL [Concomitant]
     Route: 065
  6. FERROUS SULFATE [Concomitant]
     Route: 065

REACTIONS (2)
  - LACTIC ACIDOSIS [None]
  - HYPERKALAEMIA [None]
